FAERS Safety Report 19457450 (Version 3)
Quarter: 2021Q3

REPORT INFORMATION
  Report Type: Spontaneous
  Country: GB (occurrence: GB)
  Receive Date: 20210624
  Receipt Date: 20210910
  Transmission Date: 20211014
  Serious: Yes (Life-Threatening, Hospitalization, Other)
  Sender: FDA-Public Use
  Company Number: GB-GLAXOSMITHKLINE-GB2021EME133785

PATIENT
  Sex: Male

DRUGS (1)
  1. NUCALA [Suspect]
     Active Substance: MEPOLIZUMAB
     Indication: CARDIAC ARREST
     Dosage: 100 MG, Z, EVERY 4 WEEK
     Route: 058
     Dates: start: 20190117, end: 20210607

REACTIONS (3)
  - Cardiac arrest [Recovered/Resolved]
  - Drug ineffective [Unknown]
  - Asthma [Unknown]
